FAERS Safety Report 16471309 (Version 1)
Quarter: 2019Q2

REPORT INFORMATION
  Report Type: Spontaneous
  Country: US (occurrence: US)
  Receive Date: 20190624
  Receipt Date: 20190624
  Transmission Date: 20190711
  Serious: No
  Sender: FDA-Public Use
  Company Number: US-SA-2019SA170699

PATIENT
  Age: 34 Year
  Sex: Female

DRUGS (2)
  1. DUPIXENT [Suspect]
     Active Substance: DUPILUMAB
     Dosage: ONE DUPIXENT INJECTION
     Dates: start: 2019
  2. DUPIXENT [Suspect]
     Active Substance: DUPILUMAB
     Indication: ASTHMA
     Dosage: TWO DUPIXENT INJECTIONS
     Dates: start: 201902, end: 201902

REACTIONS (6)
  - Eye irritation [Unknown]
  - Eye pain [Unknown]
  - Dry eye [Unknown]
  - Conjunctivitis [Unknown]
  - Eye discharge [Unknown]
  - Ocular discomfort [Unknown]

NARRATIVE: CASE EVENT DATE: 20190617
